FAERS Safety Report 20037746 (Version 1)
Quarter: 2021Q4

REPORT INFORMATION
  Report Type: Spontaneous
  Country: US (occurrence: US)
  Receive Date: 20211105
  Receipt Date: 20211105
  Transmission Date: 20220303
  Serious: No
  Sender: FDA-Public Use
  Company Number: US-BEH-2021137483

PATIENT
  Sex: Female

DRUGS (3)
  1. HIZENTRA [Suspect]
     Active Substance: HUMAN IMMUNOGLOBULIN G
     Indication: Immunodeficiency
     Dosage: 10 GRAM, QW
     Route: 058
     Dates: start: 20181030
  2. IMBRUVICA [Concomitant]
     Active Substance: IBRUTINIB
  3. RETACRIT [Concomitant]
     Active Substance: EPOETIN ALFA-EPBX

REACTIONS (3)
  - Hypersensitivity [Not Recovered/Not Resolved]
  - Rash [Not Recovered/Not Resolved]
  - Urinary tract infection [Not Recovered/Not Resolved]
